FAERS Safety Report 9939814 (Version 1)
Quarter: 2014Q1

REPORT INFORMATION
  Report Type: Report from Study
  Country: US (occurrence: US)
  Receive Date: 20140303
  Receipt Date: 20140303
  Transmission Date: 20141002
  Serious: No
  Sender: FDA-Public Use
  Company Number: US-ABBVIE-13P-163-1034788-00

PATIENT
  Age: 41 Year
  Sex: Female
  Weight: 86.26 kg

DRUGS (5)
  1. HUMIRA [Suspect]
     Indication: CROHN^S DISEASE
     Dosage: STARTING DOSE
     Dates: start: 20130109, end: 20130109
  2. LISINOPRIL [Concomitant]
     Indication: HYPERTENSION
  3. PAXIL [Concomitant]
     Indication: ANXIETY
  4. PAXIL [Concomitant]
     Indication: DEPRESSION
  5. LOESTRIN 24 SE [Concomitant]
     Indication: CONTRACEPTION

REACTIONS (3)
  - Injection site pain [Recovered/Resolved]
  - Injection site haemorrhage [Recovered/Resolved]
  - Headache [Not Recovered/Not Resolved]
